FAERS Safety Report 7321603-0 (Version None)
Quarter: 2011Q1

REPORT INFORMATION
  Report Type: 
  Country: None (occurrence: None)
  Receive Date: 20110228
  Receipt Date: 20100803
  Transmission Date: 20110831
  Serious: No
  Sender: FDA-Public Use
  Company Number: A0871522A

PATIENT
  Age: 53 Year
  Sex: Female
  Weight: 77.3 kg

DRUGS (3)
  1. CYMBALTA [Concomitant]
     Dosage: 40MG PER DAY
  2. VALTREX [Suspect]
     Indication: OCCIPITAL NEURALGIA
     Dosage: 1G THREE TIMES PER DAY
     Route: 048
     Dates: start: 20100519, end: 20100519
  3. LYRICA [Suspect]
     Indication: OCCIPITAL NEURALGIA
     Dosage: 50MG THREE TIMES PER DAY
     Route: 048
     Dates: start: 20100519, end: 20100519

REACTIONS (8)
  - DYSPNOEA [None]
  - PAIN [None]
  - LOCAL SWELLING [None]
  - HYPOAESTHESIA ORAL [None]
  - HYPOAESTHESIA FACIAL [None]
  - SWELLING FACE [None]
  - OEDEMA PERIPHERAL [None]
  - HEADACHE [None]
